FAERS Safety Report 19736851 (Version 1)
Quarter: 2021Q3

REPORT INFORMATION
  Report Type: Spontaneous
  Country: US (occurrence: US)
  Receive Date: 20210820
  Receipt Date: 20210820
  Transmission Date: 20211014
  Serious: No
  Sender: FDA-Public Use
  Company Number: None

PATIENT
  Sex: Female

DRUGS (1)
  1. STELARA [Suspect]
     Active Substance: USTEKINUMAB
     Indication: CROHN^S DISEASE
     Dosage: 90MG EVERY 28 DAYS
     Route: 058
     Dates: start: 202102

REACTIONS (3)
  - Micturition urgency [None]
  - Therapy non-responder [None]
  - Diarrhoea [None]
